FAERS Safety Report 22616638 (Version 1)
Quarter: 2023Q2

REPORT INFORMATION
  Report Type: Spontaneous
  Country: NL (occurrence: NL)
  Receive Date: 20230619
  Receipt Date: 20230619
  Transmission Date: 20230722
  Serious: Yes (Hospitalization)
  Sender: FDA-Public Use
  Company Number: NL-Calliditas-2023CAL00774

PATIENT

DRUGS (1)
  1. BUDESONIDE\FORMOTEROL [Suspect]
     Active Substance: BUDESONIDE\FORMOTEROL
     Indication: Chronic obstructive pulmonary disease
     Dosage: 2 INHALATIONS TWICE DAILY PLUS ADDITIONAL INHALATIONS AS NEEDED
     Route: 055

REACTIONS (1)
  - Pneumonia [Unknown]
